FAERS Safety Report 4556603-7 (Version None)
Quarter: 2005Q1

REPORT INFORMATION
  Report Type: 
  Country: None (occurrence: None)
  Receive Date: 20050118
  Receipt Date: 20050107
  Transmission Date: 20050727
  Serious: Yes (Hospitalization)
  Sender: FDA-Public Use
  Company Number: 001-0981-998387

PATIENT
  Age: 69 Year
  Sex: Female
  Weight: 55.2 kg

DRUGS (6)
  1. ATORVASTATIN (ATORVASTATIN) [Suspect]
     Indication: CORONARY ARTERY DISEASE
     Dosage: 10 MG ( 1 ) , ORAL
     Route: 048
     Dates: start: 19990820, end: 19991019
  2. TOCOPHEROL CONCENTRATE CAP [Concomitant]
  3. MULTIVITAMINS (ASCORBIC ACID, ERGOCALCIFEROL, FOLIC ACID, NICOTINAMIDE [Concomitant]
  4. B-KOMPLEX ^LECIVA^ (CALCIUM PANTOTHENATE, NICOTINAMIDE, PYRIDOXINE HYD [Concomitant]
  5. ACETYLSALICYLIC ACID SRT [Concomitant]
  6. PHENOLPHTHALEIN [Concomitant]

REACTIONS (5)
  - BACK PAIN [None]
  - CHOLECYSTITIS [None]
  - CHOLELITHIASIS [None]
  - PYREXIA [None]
  - VOMITING [None]
